FAERS Safety Report 23306801 (Version 1)
Quarter: 2023Q4

REPORT INFORMATION
  Report Type: Spontaneous
  Country: US (occurrence: US)
  Receive Date: 20231218
  Receipt Date: 20231218
  Transmission Date: 20240109
  Serious: No
  Sender: FDA-Public Use
  Company Number: US-RECKITT BENCKISER HEALTHCARE INT LIMITED-RB-103395-2022

PATIENT
  Age: 44 Year
  Sex: Female

DRUGS (1)
  1. DELSYM [Suspect]
     Active Substance: DEXTROMETHORPHAN
     Indication: Cough
     Dosage: EVERY 4 HOURS
     Route: 048
     Dates: start: 20221019

REACTIONS (2)
  - Product use issue [Unknown]
  - Accidental overdose [Unknown]
